FAERS Safety Report 21411540 (Version 1)
Quarter: 2022Q4

REPORT INFORMATION
  Report Type: Spontaneous
  Country: FR (occurrence: FR)
  Receive Date: 20221005
  Receipt Date: 20221005
  Transmission Date: 20230113
  Serious: Yes (Hospitalization)
  Sender: FDA-Public Use
  Company Number: None

PATIENT
  Age: 20 Year
  Sex: Female

DRUGS (9)
  1. CLOZAPINE [Suspect]
     Active Substance: CLOZAPINE
     Indication: Product used for unknown indication
     Dosage: UNIT DOSE: 175MILLIGRAM; FREQUENCY TIME: 1DAY; THERAPY START DATE: NASK
     Dates: end: 20220607
  2. ZOPICLONE [Suspect]
     Active Substance: ZOPICLONE
     Indication: Product used for unknown indication
     Dosage: 7.5MG; UNIT DOSE: 1DF; FREQUENCY TIME: 1DAY; THERAPY START DATE: NASK
     Dates: end: 20220617
  3. LAMOTRIGINE [Suspect]
     Active Substance: LAMOTRIGINE
     Indication: Epilepsy
     Dosage: 2X25MG; UNIT DOSE: 2DF; FREQUENCY TIME: 1DAY; DURATION : 250DAYS
     Dates: start: 20211010, end: 20220617
  4. HYDROXYZINE [Suspect]
     Active Substance: HYDROXYZINE HYDROCHLORIDE
     Indication: Product used for unknown indication
     Dosage: 25MG; UNIT DOSE: 1DOSAGE FORMS; FREQUENCY TIME: 1DAYS; THERAPY START DATE : NASK; HYDROXYZINE (CHLOR
     Dates: end: 20220617
  5. SCOPOLAMINE [Suspect]
     Active Substance: SCOPOLAMINE
     Indication: Product used for unknown indication
     Dosage: UNIT DOSE : 1DF; FREQUENCY TIME : 3DAYS; THERAPY START DATE : NASK
     Dates: end: 20220617
  6. OXAZEPAM [Suspect]
     Active Substance: OXAZEPAM
     Indication: Product used for unknown indication
     Dosage: 10MG; THERAPY START DATE : NASK
     Dates: end: 20220617
  7. LOXAPINE [Suspect]
     Active Substance: LOXAPINE
     Indication: Product used for unknown indication
     Dosage: 100MG; UNIT DOSE : 3DF; FREQUENCY TIME : 1DAYS; THERAPY START DATE : NASK
     Dates: end: 20220617
  8. TERALITHE [Suspect]
     Active Substance: LITHIUM CARBONATE
     Indication: Product used for unknown indication
     Dosage: LP400MG; UNIT DOSE : 2DF; FREQUENCY TIME : 1DAYS; THERAPY START DATE : NASK
     Dates: end: 20220617
  9. TRIHEXYPHENIDYL HYDROCHLORIDE [Suspect]
     Active Substance: TRIHEXYPHENIDYL HYDROCHLORIDE
     Indication: Product used for unknown indication
     Dosage: LP 5MG; UNIT DOSE: 2DF; FREQUENCY TIME : 1DAY; THERAPY START DATE : NASK
     Dates: end: 20220617

REACTIONS (1)
  - Status epilepticus [Recovered/Resolved]

NARRATIVE: CASE EVENT DATE: 20220617
